FAERS Safety Report 6987284-0 (Version None)
Quarter: 2010Q3

REPORT INFORMATION
  Report Type: 
  Country: None (occurrence: None)
  Receive Date: 20100916
  Receipt Date: 20100907
  Transmission Date: 20110219
  Serious: Yes (Other)
  Sender: FDA-Public Use
  Company Number: US-TYCO HEALTHCARE/MALLINCKRODT-T201001933

PATIENT
  Age: 25 Year
  Sex: Female

DRUGS (1)
  1. EXALGO [Suspect]
     Indication: DRUG ABUSE
     Dosage: 1/4 12 MG TAB
     Route: 042
     Dates: start: 20100617, end: 20100617

REACTIONS (3)
  - ABDOMINAL PAIN [None]
  - FLUSHING [None]
  - INTENTIONAL DRUG MISUSE [None]
